FAERS Safety Report 18293804 (Version 1)
Quarter: 2020Q3

REPORT INFORMATION
  Report Type: Other
  Country: US (occurrence: US)
  Receive Date: 20200921
  Receipt Date: 20200921
  Transmission Date: 20201103
  Serious: No
  Sender: FDA-Public Use
  Company Number: US-ACORDA-ACO_165806_2020

PATIENT
  Sex: Female

DRUGS (6)
  1. BABY ASPIRIN [Concomitant]
     Active Substance: ASPIRIN
     Indication: PRODUCT USED FOR UNKNOWN INDICATION
     Dosage: 81 MG AT NIGHT
     Route: 065
  2. RIZOPROL [Concomitant]
     Indication: PRODUCT USED FOR UNKNOWN INDICATION
     Dosage: 10/6.25MG ONCE DAILY
     Route: 065
  3. INBRIJA [Suspect]
     Active Substance: LEVODOPA
     Indication: PARKINSON^S DISEASE
     Dosage: 84 MILLIGRAM, PRN. NOT TO EXCEED 5 DOSES A DAY
     Dates: start: 20200801, end: 202008
  4. POTASSIUM [Concomitant]
     Active Substance: POTASSIUM
     Indication: PRODUCT USED FOR UNKNOWN INDICATION
     Dosage: 10 MEQ, 2 TABLETS IN THE MORNING AND 1 TABLET AT NIGHT
     Route: 065
  5. CARBIDOPA W/LEVODOPA [Concomitant]
     Active Substance: CARBIDOPA\LEVODOPA
     Indication: PRODUCT USED FOR UNKNOWN INDICATION
     Dosage: 25/100 MG, 1 1/2 TABLET FOUR TIMES A DAY
     Route: 065
  6. INBRIJA [Suspect]
     Active Substance: LEVODOPA
     Indication: ON AND OFF PHENOMENON

REACTIONS (8)
  - Dizziness [Recovered/Resolved]
  - Anxiety [Unknown]
  - Panic attack [Recovering/Resolving]
  - Condition aggravated [Recovered/Resolved]
  - Paranoia [Unknown]
  - Depression [Unknown]
  - Impaired driving ability [Unknown]
  - Emotional disorder [Unknown]
